FAERS Safety Report 20036957 (Version 1)
Quarter: 2021Q4

REPORT INFORMATION
  Report Type: Spontaneous
  Country: US (occurrence: US)
  Receive Date: 20211105
  Receipt Date: 20211105
  Transmission Date: 20220303
  Serious: Yes (Other)
  Sender: FDA-Public Use
  Company Number: US-GLAXOSMITHKLINE-US2021GSK225792

PATIENT
  Sex: Female

DRUGS (9)
  1. ZANTAC [Suspect]
     Active Substance: RANITIDINE HYDROCHLORIDE
     Indication: Rhinorrhoea
     Dosage: UNKNOWN AT THIS TIME, QD
     Route: 065
     Dates: start: 200501, end: 201101
  2. ZANTAC [Suspect]
     Active Substance: RANITIDINE HYDROCHLORIDE
     Indication: Rhinorrhoea
     Dosage: UNKNOWN AT THIS TIME, QD
     Route: 065
     Dates: start: 200501, end: 201101
  3. ZANTAC [Suspect]
     Active Substance: RANITIDINE HYDROCHLORIDE
     Indication: Rhinorrhoea
     Dosage: UNKNOWN AT THIS TIME, QD
     Route: 065
     Dates: start: 200501, end: 201101
  4. ZANTAC [Suspect]
     Active Substance: RANITIDINE HYDROCHLORIDE
     Indication: Rhinorrhoea
     Dosage: UNKNOWN AT THIS TIME, QD
     Route: 065
     Dates: start: 200501, end: 201101
  5. RANITIDINE [Suspect]
     Active Substance: RANITIDINE
     Indication: Rhinorrhoea
     Dosage: UNKNOWN AT THIS TIME, QD
     Route: 065
     Dates: start: 200501, end: 201101
  6. ZANTAC [Suspect]
     Active Substance: RANITIDINE HYDROCHLORIDE
     Indication: Rhinorrhoea
     Dosage: UNKNOWN AT THIS TIME, QD
     Route: 065
     Dates: start: 200501, end: 201101
  7. RANITIDINE HYDROCHLORIDE [Suspect]
     Active Substance: RANITIDINE HYDROCHLORIDE
     Indication: Rhinorrhoea
     Dosage: UNKNOWN AT THIS TIME, QD
     Route: 065
     Dates: start: 200501, end: 201101
  8. RANITIDINE HYDROCHLORIDE [Suspect]
     Active Substance: RANITIDINE HYDROCHLORIDE
     Indication: Rhinorrhoea
     Dosage: UNKNOWN AT THIS TIME, QD
     Route: 065
     Dates: start: 200501, end: 201101
  9. RANITIDINE [Suspect]
     Active Substance: RANITIDINE
     Indication: Rhinorrhoea
     Dosage: UNKNOWN AT THIS TIME, QD
     Route: 065
     Dates: start: 200501, end: 201101

REACTIONS (1)
  - Breast cancer [Unknown]
